FAERS Safety Report 9853450 (Version 1)
Quarter: 2014Q1

REPORT INFORMATION
  Report Type: Spontaneous
  Country: KR (occurrence: KR)
  Receive Date: 20140129
  Receipt Date: 20140129
  Transmission Date: 20141002
  Serious: Yes (Hospitalization)
  Sender: FDA-Public Use
  Company Number: PHHY2014KR008169

PATIENT
  Age: 6 Year
  Sex: Female

DRUGS (2)
  1. METHYLPREDNISOLONE [Suspect]
     Indication: ACUTE DISSEMINATED ENCEPHALOMYELITIS
     Dosage: 30 MG/KG, UNK
     Route: 042
  2. METHYLPREDNISOLONE [Suspect]
     Dosage: 30 MG/KG, UNK
     Route: 042

REACTIONS (8)
  - Optic neuritis [Recovered/Resolved]
  - Headache [Recovered/Resolved]
  - Eye pain [Recovered/Resolved]
  - Vision blurred [Recovered/Resolved]
  - Visual acuity reduced [Recovered/Resolved]
  - Visual field defect [Recovered/Resolved]
  - Colour blindness acquired [Recovered/Resolved]
  - Pupillary reflex impaired [Recovered/Resolved]
